FAERS Safety Report 5714118-4 (Version None)
Quarter: 2008Q2

REPORT INFORMATION
  Report Type: 
  Country: None (occurrence: None)
  Receive Date: 20080422
  Receipt Date: 20080422
  Transmission Date: 20081010
  Serious: Yes (Life-Threatening)
  Sender: FDA-Public Use
  Company Number: None

PATIENT
  Age: 61 Year
  Sex: Male

DRUGS (9)
  1. MULTIHANCE [Suspect]
     Indication: NUCLEAR MAGNETIC RESONANCE IMAGING
     Dosage: 20 ML ONE TIME IV BOLUS
     Route: 040
     Dates: start: 20071114, end: 20071114
  2. ASCORBIC ACID [Concomitant]
  3. CEFAZOLIN [Concomitant]
  4. FOLIC ACID [Concomitant]
  5. INSULIN [Concomitant]
  6. VITAMIN CAP [Concomitant]
  7. RANITIDINE [Concomitant]
  8. TEMAZEPAM [Concomitant]
  9. VANCOMYCIN [Concomitant]

REACTIONS (4)
  - HYPERSENSITIVITY [None]
  - HYPOTENSION [None]
  - HYPOXIA [None]
  - TACHYCARDIA [None]
